FAERS Safety Report 8568277 (Version 2)
Quarter: 2012Q4

REPORT INFORMATION
  Report Type: 
  Country: US (occurrence: US)
  Receive Date: 20120518
  Receipt Date: 20120927
  Transmission Date: 20130627
  Serious: Yes (Death)
  Sender: FDA-Public Use
  Company Number: PHEH2012US010307

PATIENT
  Age: 56 Year
  Sex: Female

DRUGS (2)
  1. GLEEVEC [Suspect]
     Indication: MALIGNANT SOFT TISSUE NEOPLASM
     Dosage: 300 mg, QD
     Route: 048
     Dates: start: 20120425
  2. NILOTINIB [Concomitant]
     Indication: GASTROINTESTINAL STROMAL TUMOUR
     Dosage: 400 mg, BID
     Route: 048
     Dates: start: 20120102, end: 20120802

REACTIONS (1)
  - Death [Fatal]
